FAERS Safety Report 18394544 (Version 2)
Quarter: 2020Q4

REPORT INFORMATION
  Report Type: Spontaneous
  Country: DE (occurrence: DE)
  Receive Date: 20201017
  Receipt Date: 20201105
  Transmission Date: 20210114
  Serious: Yes (Other)
  Sender: FDA-Public Use
  Company Number: NVSC2020DE275757

PATIENT
  Age: 7 Decade
  Sex: Male
  Weight: 100 kg

DRUGS (6)
  1. OXALIPLATIN. [Suspect]
     Active Substance: OXALIPLATIN
     Indication: ADENOCARCINOMA OF COLON
     Dosage: 170 MG (LAST ADMINISTRATION BEFORE ONSET: 22 JUN 2020)
     Route: 042
     Dates: start: 20200218
  2. 5-FU MEDAC [Concomitant]
     Active Substance: FLUOROURACIL
     Dosage: 4800 MG (LAST ADMINISTRATION BEFORE ONSET: 22 JUN 2020, VIA INFUSION PUMP)
     Route: 042
     Dates: start: 20200218
  3. ONCOFOLIC [Concomitant]
     Active Substance: FOLATE SODIUM
     Indication: ADENOCARCINOMA OF COLON
     Dosage: 800 MG (LAST ADMINISTRATION BEFORE ONSET: 22 JUN 2020)
     Route: 042
     Dates: start: 20200218, end: 20200722
  4. IVEMEND [Concomitant]
     Active Substance: FOSAPREPITANT DIMEGLUMINE
     Indication: PREMEDICATION
     Dosage: 150MG (BEFORE CHEMOTHERAPY)
     Route: 065
  5. 5-FU MEDAC [Concomitant]
     Active Substance: FLUOROURACIL
     Indication: ADENOCARCINOMA OF COLON
     Dosage: 800 MG (LAST ADMINISTRATION BEFORE ONSET: 22 JUN 2020)
     Route: 042
     Dates: start: 20200218
  6. GRANISETRON [Concomitant]
     Active Substance: GRANISETRON
     Indication: PREMEDICATION
     Dosage: 1MG (BEFORE CHEMOTHERAPY)
     Route: 065

REACTIONS (2)
  - Platelet count decreased [Recovered/Resolved]
  - Thrombotic thrombocytopenic purpura [Recovered/Resolved]

NARRATIVE: CASE EVENT DATE: 20200706
